FAERS Safety Report 9185280 (Version 1)
Quarter: 2013Q1

REPORT INFORMATION
  Report Type: Spontaneous
  Country: JP (occurrence: JP)
  Receive Date: 20130325
  Receipt Date: 20130325
  Transmission Date: 20140127
  Serious: Yes (Hospitalization)
  Sender: FDA-Public Use
  Company Number: JP-BIOGENIDEC-2012BI029104

PATIENT
  Age: 39 Year
  Sex: Male
  Weight: 68 kg

DRUGS (17)
  1. AVONEX [Suspect]
     Indication: RELAPSING-REMITTING MULTIPLE SCLEROSIS
     Route: 030
     Dates: start: 20100921
  2. STEROIDS [Concomitant]
     Indication: PRODUCT USED FOR UNKNOWN INDICATION
  3. SOLETON [Concomitant]
     Indication: PROPHYLAXIS
     Route: 048
     Dates: start: 20100921, end: 20111001
  4. PREDNISOLONE [Concomitant]
     Indication: MULTIPLE SCLEROSIS
     Route: 048
     Dates: start: 20100424, end: 20110401
  5. PREDNISOLONE [Concomitant]
     Indication: MULTIPLE SCLEROSIS
     Route: 048
     Dates: start: 20110402, end: 20110422
  6. PREDNISOLONE [Concomitant]
     Indication: MULTIPLE SCLEROSIS
     Route: 048
     Dates: start: 20110423, end: 20110520
  7. PREDNISOLONE [Concomitant]
     Indication: MULTIPLE SCLEROSIS
     Route: 048
     Dates: start: 20110521, end: 20110617
  8. PREDNISOLONE [Concomitant]
     Indication: MULTIPLE SCLEROSIS
     Route: 048
     Dates: start: 20110618, end: 20110811
  9. IRRIBOW [Concomitant]
     Indication: IRRITABLE BOWEL SYNDROME
     Route: 048
     Dates: start: 20100904, end: 20101015
  10. RIVOTRIL [Concomitant]
     Indication: MULTIPLE SCLEROSIS
     Route: 048
     Dates: start: 20090718
  11. MUCOSTA [Concomitant]
     Indication: PROPHYLAXIS
     Route: 048
     Dates: start: 20070507
  12. MYONAL [Concomitant]
     Indication: MULTIPLE SCLEROSIS
     Route: 048
     Dates: start: 20061216
  13. LENDORMIN [Concomitant]
     Indication: INSOMNIA
     Route: 048
     Dates: start: 20020803
  14. WARKMIN [Concomitant]
     Route: 048
     Dates: start: 20080906
  15. DEPAS [Concomitant]
     Indication: MULTIPLE SCLEROSIS
     Route: 048
     Dates: start: 20080906
  16. TIMOPTOL [Concomitant]
     Indication: GLAUCOMA
     Route: 031
     Dates: start: 20090718
  17. AZOPT [Concomitant]
     Indication: GLAUCOMA
     Route: 031
     Dates: start: 20090813, end: 20120225

REACTIONS (5)
  - Stress [Unknown]
  - Pyrexia [Recovered/Resolved]
  - Glaucoma [Recovered/Resolved with Sequelae]
  - Multiple sclerosis relapse [Unknown]
  - Hypertension [Recovered/Resolved]
